FAERS Safety Report 9916303 (Version 2)
Quarter: 2014Q1

REPORT INFORMATION
  Report Type: Spontaneous
  Country: BR (occurrence: BR)
  Receive Date: 20140221
  Receipt Date: 20140226
  Transmission Date: 20141002
  Serious: Yes (Other)
  Sender: FDA-Public Use
  Company Number: BR-JNJFOC-20140210951

PATIENT
  Age: 71 Year
  Sex: Female

DRUGS (8)
  1. XARELTO [Suspect]
     Indication: CEREBROVASCULAR ACCIDENT PROPHYLAXIS
     Route: 048
     Dates: start: 201309, end: 201402
  2. XARELTO [Suspect]
     Indication: ATRIAL FIBRILLATION
     Route: 048
     Dates: start: 201309, end: 201402
  3. LOSARTAN [Concomitant]
     Indication: HYPERTENSION
     Route: 065
     Dates: start: 201309
  4. ENALAPRIL [Concomitant]
     Indication: HYPERTENSION
     Route: 065
  5. PROPRANOLOL [Concomitant]
     Indication: HYPERTENSION
     Route: 065
  6. ATENOLOL [Concomitant]
     Route: 065
     Dates: start: 201309
  7. INDAPAMIDE [Concomitant]
     Route: 065
     Dates: start: 201309
  8. WARFARIN [Concomitant]
     Route: 065
     Dates: start: 201401

REACTIONS (4)
  - Atrial thrombosis [Unknown]
  - Blood pressure increased [Unknown]
  - Pulmonary arterial pressure increased [Unknown]
  - Fatigue [Unknown]
